FAERS Safety Report 8035782-3 (Version None)
Quarter: 2012Q1

REPORT INFORMATION
  Report Type: 
  Country: None (occurrence: None)
  Receive Date: 20120111
  Receipt Date: 20111229
  Transmission Date: 20120608
  Serious: Yes (Other)
  Sender: FDA-Public Use
  Company Number: US-WATSON-2011-22899

PATIENT
  Age: 51 Year
  Sex: Female

DRUGS (3)
  1. ERYTHROMYCIN [Suspect]
     Indication: PNEUMONIA LEGIONELLA
     Dosage: ORAL X 12 D, IV X 8 D, THEN ORAL AGAIN
     Route: 048
  2. AMIKACIN [Suspect]
     Indication: PNEUMONIA LEGIONELLA
     Dosage: 300 MG, Q8H X 9 DOSES
  3. ERYTHROMYCIN [Suspect]
     Dosage: UNK
     Route: 042

REACTIONS (3)
  - OTOTOXICITY [None]
  - DRUG INTERACTION [None]
  - RENAL IMPAIRMENT [None]
